FAERS Safety Report 24979774 (Version 3)
Quarter: 2025Q1

REPORT INFORMATION
  Report Type: Spontaneous
  Country: JP (occurrence: JP)
  Receive Date: 20250218
  Receipt Date: 20250314
  Transmission Date: 20250409
  Serious: No
  Sender: MERCK SHARP & DOHME LLC
  Company Number: JP-MSD-M2025-04024

PATIENT
  Age: 79 Year
  Sex: Male

DRUGS (2)
  1. LAGEVRIO [Suspect]
     Active Substance: MOLNUPIRAVIR
     Indication: COVID-19 treatment
     Dosage: 800 MG, TWICE A DAY
     Route: 048
     Dates: start: 20250124, end: 20250128
  2. CALONAL [Concomitant]
     Active Substance: ACETAMINOPHEN
     Route: 065
     Dates: start: 20250124

REACTIONS (6)
  - Product closure removal difficult [Recovered/Resolved]
  - Product contamination physical [Recovered/Resolved]
  - Wrong product administered [Recovered/Resolved]
  - Accidental underdose [Recovered/Resolved]
  - Product use issue [Recovered/Resolved]
  - No adverse event [Unknown]

NARRATIVE: CASE EVENT DATE: 20250124
